FAERS Safety Report 9829992 (Version 1)
Quarter: 2014Q1

REPORT INFORMATION
  Report Type: Spontaneous
  Country: IT (occurrence: IT)
  Receive Date: 20140120
  Receipt Date: 20140120
  Transmission Date: 20141002
  Serious: Yes (Other)
  Sender: FDA-Public Use
  Company Number: PHHY2014IT002675

PATIENT
  Age: 31 Year
  Sex: Male

DRUGS (1)
  1. TRIAMCINOLONE ACETONIDE [Suspect]
     Indication: JOINT SWELLING
     Dosage: 20 MG

REACTIONS (4)
  - Lymphatic disorder [Unknown]
  - Skin atrophy [Unknown]
  - Alopecia [Unknown]
  - Skin depigmentation [Unknown]
